FAERS Safety Report 21020379 (Version 1)
Quarter: 2022Q2

REPORT INFORMATION
  Report Type: Report from Study
  Country: US (occurrence: US)
  Receive Date: 20220629
  Receipt Date: 20220629
  Transmission Date: 20220721
  Serious: Yes (Other)
  Sender: FDA-Public Use
  Company Number: US-ABBVIE-22K-163-4448877-00

PATIENT
  Sex: Female

DRUGS (1)
  1. HUMIRA [Suspect]
     Active Substance: ADALIMUMAB
     Indication: Rheumatoid arthritis
     Dosage: CITRATE FREE
     Route: 058

REACTIONS (7)
  - Fractured coccyx [Recovering/Resolving]
  - Nerve compression [Recovering/Resolving]
  - Back disorder [Recovering/Resolving]
  - Multiple fractures [Recovering/Resolving]
  - Fall [Recovering/Resolving]
  - Cardiac disorder [Unknown]
  - Drug ineffective [Unknown]
